FAERS Safety Report 8134199-0 (Version None)
Quarter: 2012Q1

REPORT INFORMATION
  Report Type: 
  Country: None (occurrence: None)
  Receive Date: 20120209
  Receipt Date: 20120201
  Transmission Date: 20120608
  Serious: Yes (Other)
  Sender: FDA-Public Use
  Company Number: ACO_27786_2011

PATIENT
  Sex: Female

DRUGS (4)
  1. BACLOFEN [Concomitant]
  2. AVONEX [Suspect]
     Indication: PRODUCT USED FOR UNKNOWN INDICATION
     Dosage: UNK
  3. AMPYRA [Suspect]
     Indication: GAIT DISTURBANCE
     Dosage: 10 MG, BID, ORAL
     Route: 048
     Dates: start: 20101108
  4. REQUIP [Concomitant]

REACTIONS (3)
  - INCREASED TENDENCY TO BRUISE [None]
  - LIVER FUNCTION TEST ABNORMAL [None]
  - LIVER DISORDER [None]
